FAERS Safety Report 18644891 (Version 5)
Quarter: 2021Q1

REPORT INFORMATION
  Report Type: Spontaneous
  Country: CZ (occurrence: CZ)
  Receive Date: 20201221
  Receipt Date: 20210129
  Transmission Date: 20210419
  Serious: Yes (Death)
  Sender: FDA-Public Use
  Company Number: CZ-ALLERGAN-2049103US

PATIENT
  Sex: Male
  Weight: 35 kg

DRUGS (7)
  1. ABELCET [Suspect]
     Active Substance: AMPHOTERICIN B\DIMYRISTOYLPHOSPHATIDYLCHOLINE, DL-\DIMYRISTOYLPHOSPHATIDYLGLYCEROL, DL-
     Indication: MUCORMYCOSIS
     Dosage: UNK
     Route: 065
     Dates: start: 20201206
  2. CEFTAZIDIME;AVIBACTAM ? BP [Suspect]
     Active Substance: AVIBACTAM SODIUM\CEFTAZIDIME
     Indication: ESCHERICHIA INFECTION
  3. CRESEMBA [Suspect]
     Active Substance: ISAVUCONAZONIUM SULFATE
     Indication: MUCORMYCOSIS
     Dosage: 200 MG, QD
     Route: 042
     Dates: start: 20201211
  4. MYCAMINE [Concomitant]
     Active Substance: MICAFUNGIN SODIUM
     Indication: MUCORMYCOSIS
     Dosage: LONG TERM USE
     Dates: start: 202009, end: 20201206
  5. CRESEMBA [Suspect]
     Active Substance: ISAVUCONAZONIUM SULFATE
     Dosage: 200 MG, Q8HR
     Route: 042
     Dates: start: 20201209, end: 20201210
  6. NOXAFIL [Concomitant]
     Active Substance: POSACONAZOLE
     Indication: MUCORMYCOSIS
     Dosage: UNK
     Route: 048
     Dates: start: 20201027, end: 20201208
  7. CEFTAZIDIME;AVIBACTAM ? BP [Suspect]
     Active Substance: AVIBACTAM SODIUM\CEFTAZIDIME
     Indication: KLEBSIELLA INFECTION
     Dosage: UNK UNK, SINGLE
     Route: 065
     Dates: start: 20201207

REACTIONS (1)
  - Fungal infection [Fatal]

NARRATIVE: CASE EVENT DATE: 20201213
